FAERS Safety Report 5528179-9 (Version None)
Quarter: 2007Q4

REPORT INFORMATION
  Report Type: 
  Country: None (occurrence: None)
  Receive Date: 20071128
  Receipt Date: 20071116
  Transmission Date: 20080405
  Serious: Yes (Hospitalization, Other)
  Sender: FDA-Public Use
  Company Number: IS-PFIZER INC-2007097622

PATIENT
  Age: 81 Year
  Sex: Female
  Weight: 80 kg

DRUGS (4)
  1. DETRUSITOL LA [Suspect]
     Indication: URINARY INCONTINENCE
     Dosage: DAILY DOSE:2.8MG
     Route: 048
  2. PARKODEIN FORTE [Concomitant]
  3. NAPROXEN [Concomitant]
  4. MONOTRIM [Concomitant]

REACTIONS (3)
  - BLOOD CREATININE INCREASED [None]
  - MALAISE [None]
  - URINARY TRACT INFECTION [None]
